FAERS Safety Report 5633465-8 (Version None)
Quarter: 2008Q1

REPORT INFORMATION
  Report Type: 
  Country: None (occurrence: None)
  Receive Date: 20080221
  Receipt Date: 20080212
  Transmission Date: 20080703
  Serious: Yes (Other)
  Sender: FDA-Public Use
  Company Number: GB-ELI_LILLY_AND_COMPANY-GB200802002714

PATIENT
  Age: 15 Year
  Sex: Female
  Weight: 65.8 kg

DRUGS (2)
  1. STRATTERA [Suspect]
     Indication: ATTENTION DEFICIT/HYPERACTIVITY DISORDER
     Dosage: 25 MG, UNKNOWN
     Route: 048
     Dates: start: 20080125, end: 20080127
  2. LEVOTHYROXINE SODIUM [Concomitant]
     Indication: HYPOTHYROIDISM
     Dosage: 100 UG, UNKNOWN
     Route: 048
     Dates: start: 20060101

REACTIONS (5)
  - ANXIETY [None]
  - ASTHENIA [None]
  - AUTISM SPECTRUM DISORDER [None]
  - DYSSTASIA [None]
  - LETHARGY [None]
